FAERS Safety Report 25535443 (Version 4)
Quarter: 2025Q3

REPORT INFORMATION
  Report Type: Report from Study
  Country: CA (occurrence: CA)
  Receive Date: 20250709
  Receipt Date: 20250911
  Transmission Date: 20251020
  Serious: Yes (Hospitalization, Other)
  Sender: ALEXION PHARMACEUTICALS
  Company Number: CA-AstraZeneca-CH-00904476A

PATIENT
  Sex: Female

DRUGS (3)
  1. TEZEPELUMAB [Suspect]
     Active Substance: TEZEPELUMAB
     Indication: Asthma
  2. TEZEPELUMAB [Suspect]
     Active Substance: TEZEPELUMAB
  3. PREDNISONE [Concomitant]
     Active Substance: PREDNISONE
     Route: 065

REACTIONS (11)
  - Haemoglobin decreased [Unknown]
  - Infection [Unknown]
  - Adrenal insufficiency [Unknown]
  - Vomiting [Unknown]
  - Gait inability [Unknown]
  - Pain in extremity [Unknown]
  - Chest pain [Unknown]
  - Aphasia [Unknown]
  - Giant cell arteritis [Unknown]
  - Feeling abnormal [Unknown]
  - Asthenia [Unknown]
